FAERS Safety Report 7320031-1 (Version None)
Quarter: 2011Q1

REPORT INFORMATION
  Report Type: 
  Country: None (occurrence: None)
  Receive Date: 20110228
  Receipt Date: 20110215
  Transmission Date: 20110831
  Serious: Yes (Other)
  Sender: FDA-Public Use
  Company Number: NO-WATSON-2011-02101

PATIENT
  Age: 57 Year
  Sex: Male

DRUGS (1)
  1. METFORMIN HCL [Suspect]
     Indication: PRODUCT USED FOR UNKNOWN INDICATION
     Dosage: UNK
     Route: 065

REACTIONS (9)
  - BLOOD ELECTROLYTES DECREASED [None]
  - PAIN [None]
  - DIARRHOEA [None]
  - HYPOKALAEMIA [None]
  - MALAISE [None]
  - MUSCLE SPASMS [None]
  - HYPOCALCAEMIA [None]
  - HYPOMAGNESAEMIA [None]
  - PARAESTHESIA [None]
